FAERS Safety Report 6869307-2 (Version None)
Quarter: 2010Q3

REPORT INFORMATION
  Report Type: 
  Country: None (occurrence: None)
  Receive Date: 20100722
  Receipt Date: 20080722
  Transmission Date: 20110219
  Serious: Yes (Other)
  Sender: FDA-Public Use
  Company Number: US-PFIZER INC-2008062275

PATIENT
  Sex: Male

DRUGS (6)
  1. CHANTIX [Suspect]
     Indication: SMOKING CESSATION THERAPY
  2. ZYPREXA [Concomitant]
     Indication: SCHIZOPHRENIA
  3. METFORMIN [Concomitant]
  4. GLIPIZIDE [Concomitant]
  5. VALSARTAN [Concomitant]
  6. ACETYLSALICYLIC ACID [Concomitant]

REACTIONS (5)
  - AFFECT LABILITY [None]
  - AGGRESSION [None]
  - AGITATION [None]
  - ANGER [None]
  - THINKING ABNORMAL [None]
